FAERS Safety Report 18573911 (Version 1)
Quarter: 2020Q4

REPORT INFORMATION
  Report Type: Spontaneous
  Country: US (occurrence: US)
  Receive Date: 20201125
  Receipt Date: 20201125
  Transmission Date: 20210114
  Serious: Yes (Death)
  Sender: FDA-Public Use
  Company Number: None

PATIENT
  Age: 8 Decade
  Sex: Male

DRUGS (5)
  1. METFORMIN [Suspect]
     Active Substance: METFORMIN HYDROCHLORIDE
     Indication: COVID-19
     Dates: start: 2020
  2. HYDROXYCHLOROQUINE [Suspect]
     Active Substance: HYDROXYCHLOROQUINE
     Indication: COVID-19
     Dates: start: 2020
  3. AMLODIPINE [Suspect]
     Active Substance: AMLODIPINE BESYLATE
     Indication: COVID-19
     Dates: start: 2020
  4. ENOXAPARIN [Suspect]
     Active Substance: ENOXAPARIN
     Indication: COVID-19
     Dates: start: 2020
  5. FONDAPARINUX [Suspect]
     Active Substance: FONDAPARINUX
     Indication: COVID-19
     Dates: start: 2020

REACTIONS (6)
  - Acute respiratory failure [None]
  - Dry gangrene [None]
  - Peripheral ischaemia [None]
  - Deep vein thrombosis [None]
  - Product use in unapproved indication [None]
  - Coagulopathy [None]
